FAERS Safety Report 17496684 (Version 1)
Quarter: 2020Q1

REPORT INFORMATION
  Report Type: Spontaneous
  Country: US (occurrence: US)
  Receive Date: 20200304
  Receipt Date: 20200304
  Transmission Date: 20200409
  Serious: Yes (Life-Threatening, Hospitalization, Other)
  Sender: FDA-Public Use
  Company Number: US-ELI_LILLY_AND_COMPANY-US202002013485

PATIENT
  Sex: Female

DRUGS (5)
  1. REMODULIN [Concomitant]
     Active Substance: TREPROSTINIL
     Indication: PULMONARY ARTERIAL HYPERTENSION
     Route: 042
  2. ORENITRAM [Concomitant]
     Active Substance: TREPROSTINIL
     Indication: PULMONARY ARTERIAL HYPERTENSION
     Dosage: 20 NG/KG/MIN
     Route: 042
  3. TADALAFIL. [Suspect]
     Active Substance: TADALAFIL
     Dosage: 20 MG, DAILY
     Route: 065
     Dates: start: 20200122
  4. LASIX M [Concomitant]
     Active Substance: FUROSEMIDE
     Indication: PRODUCT USED FOR UNKNOWN INDICATION
     Dosage: 20 MG, DAILY
     Route: 042
     Dates: start: 20200122
  5. TADALAFIL. [Suspect]
     Active Substance: TADALAFIL
     Indication: PULMONARY ARTERIAL HYPERTENSION
     Dosage: 20 MG, DAILY
     Route: 065

REACTIONS (13)
  - Staphylococcal sepsis [Recovered/Resolved]
  - Endocarditis [Unknown]
  - Renal infarct [Recovered/Resolved]
  - Pneumonia [Recovered/Resolved]
  - Subarachnoid haemorrhage [Recovered/Resolved]
  - Brain abscess [Unknown]
  - Septic shock [Recovered/Resolved]
  - Dyspnoea [Unknown]
  - Septic embolus [Unknown]
  - Pain [Unknown]
  - Respiratory failure [Recovered/Resolved]
  - Arterial occlusive disease [Unknown]
  - Presyncope [Unknown]

NARRATIVE: CASE EVENT DATE: 20200103
